FAERS Safety Report 16342363 (Version 1)
Quarter: 2019Q2

REPORT INFORMATION
  Report Type: Report from Study
  Country: GB (occurrence: GB)
  Receive Date: 20190522
  Receipt Date: 20190522
  Transmission Date: 20190711
  Serious: Yes (Other)
  Sender: FDA-Public Use
  Company Number: GB-PFIZER INC-2019167847

PATIENT
  Age: 62 Year
  Sex: Male

DRUGS (12)
  1. SULFASALAZINE. [Interacting]
     Active Substance: SULFASALAZINE
     Dosage: UNK
     Route: 065
  2. ASPIRIN [ACETYLSALICYLIC ACID] [Interacting]
     Active Substance: ASPIRIN
     Dosage: UNK
     Route: 065
  3. BARICITINIB [Interacting]
     Active Substance: BARICITINIB
     Dosage: 4 MG, 1X/DAY DOSAGE 2
  4. DOXAZOSIN MESILATE [Interacting]
     Active Substance: DOXAZOSIN MESYLATE
     Indication: CARDIAC DISORDER
     Dosage: UNK
     Route: 065
  5. ATORVASTATIN CALCIUM. [Suspect]
     Active Substance: ATORVASTATIN CALCIUM
     Dosage: UNK
     Route: 065
  6. DULOXETINE. [Interacting]
     Active Substance: DULOXETINE
     Dosage: UNK
     Route: 065
  7. LISINOPRIL. [Interacting]
     Active Substance: LISINOPRIL
     Dosage: UNK
     Route: 065
  8. ZOPICLONE [Interacting]
     Active Substance: ZOPICLONE
     Dosage: UNK
     Route: 065
  9. PREGABALIN. [Interacting]
     Active Substance: PREGABALIN
     Dosage: UNK
     Route: 065
  10. BARICITINIB [Interacting]
     Active Substance: BARICITINIB
     Dosage: 4 MG, 1X/DAY DOSAGE 1
  11. DIHYDROCODEINE [Interacting]
     Active Substance: DIHYDROCODEINE
     Dosage: UNK
     Route: 065
  12. OMEPRAZOL [OMEPRAZOLE] [Interacting]
     Active Substance: OMEPRAZOLE
     Dosage: UNK
     Route: 065

REACTIONS (5)
  - Drug interaction [Unknown]
  - Blood glucose increased [Unknown]
  - Pain in extremity [Unknown]
  - Hypersensitivity [Unknown]
  - Vision blurred [Unknown]
